FAERS Safety Report 5031530-X (Version None)
Quarter: 2006Q2

REPORT INFORMATION
  Report Type: 
  Country: None (occurrence: None)
  Receive Date: 20060621
  Receipt Date: 20060406
  Transmission Date: 20061013
  Serious: Yes (Other)
  Sender: FDA-Public Use
  Company Number: PHBS2006ES05322

PATIENT
  Age: 36 Year
  Sex: Male

DRUGS (5)
  1. GLEEVEC [Suspect]
     Route: 048
     Dates: start: 20020701
  2. GLEEVEC [Suspect]
     Dosage: 100 MG, QW
     Route: 048
  3. GLEEVEC [Suspect]
     Dosage: 200 MG, QW
     Route: 048
  4. RENITEC [Concomitant]
     Dates: start: 20030101
  5. DIGOXIN [Concomitant]
     Dosage: UNK, UNK
     Dates: start: 20030101

REACTIONS (4)
  - ASPARTATE AMINOTRANSFERASE INCREASED [None]
  - BLOOD CHOLESTEROL INCREASED [None]
  - BLOOD TRIGLYCERIDES INCREASED [None]
  - TRANSAMINASES INCREASED [None]
